FAERS Safety Report 15557948 (Version 1)
Quarter: 2018Q4

REPORT INFORMATION
  Report Type: Spontaneous
  Country: JP (occurrence: JP)
  Receive Date: 20181027
  Receipt Date: 20181027
  Transmission Date: 20190205
  Serious: Yes (Other)
  Sender: FDA-Public Use
  Company Number: JP-009507513-1810JPN002770J

PATIENT
  Age: 68 Year
  Sex: Male

DRUGS (8)
  1. LANDSEN [Concomitant]
     Active Substance: CLONAZEPAM
     Dosage: UNK
     Route: 048
     Dates: start: 20160317, end: 20180820
  2. MAGNESIUM OXIDE. [Concomitant]
     Active Substance: MAGNESIUM OXIDE
     Dosage: UNK
     Route: 048
  3. DOPAREEL [Concomitant]
     Active Substance: ZOPICLONE
     Dosage: UNK
     Route: 065
  4. NEUPRO [Suspect]
     Active Substance: ROTIGOTINE
     Indication: PARKINSON^S DISEASE
     Dosage: 9 MILLIGRAM, QD
     Dates: start: 20160317, end: 20180516
  5. STALEVO [Concomitant]
     Active Substance: CARBIDOPA\ENTACAPONE\LEVODOPA
     Dosage: UNK
     Route: 065
  6. MENESIT TABLETS - 100 [Suspect]
     Active Substance: CARBIDOPA\LEVODOPA
     Dosage: 150 MILLIGRAM, QD
     Route: 048
     Dates: start: 20160317
  7. SODIUM RABEPRAZOLE [Concomitant]
     Active Substance: RABEPRAZOLE SODIUM
     Dosage: UNK
     Route: 065
  8. ARTANE [Concomitant]
     Active Substance: TRIHEXYPHENIDYL HYDROCHLORIDE
     Dosage: UNK
     Route: 048
     Dates: start: 20160317, end: 20180820

REACTIONS (7)
  - Skin erosion [Unknown]
  - Blister [Unknown]
  - Rhabdomyolysis [Recovered/Resolved]
  - Erythema [Unknown]
  - Drug dose titration not performed [Unknown]
  - Peripheral swelling [Unknown]
  - Lack of application site rotation [Unknown]

NARRATIVE: CASE EVENT DATE: 20180516
